FAERS Safety Report 8456219-6 (Version None)
Quarter: 2012Q2

REPORT INFORMATION
  Report Type: 
  Country: None (occurrence: None)
  Receive Date: 20120621
  Receipt Date: 20120611
  Transmission Date: 20120825
  Serious: Yes (Hospitalization)
  Sender: FDA-Public Use
  Company Number: BR-SANOFI-AVENTIS-2011SA057132

PATIENT
  Age: 29 Year
  Sex: Female
  Weight: 84 kg

DRUGS (2)
  1. LANTUS [Suspect]
     Indication: TYPE 2 DIABETES MELLITUS
     Route: 058
     Dates: start: 20110827
  2. SOLOSTAR [Suspect]
     Indication: DEVICE THERAPY
     Dates: start: 20110827

REACTIONS (6)
  - HYPERTENSION [None]
  - MATERNAL EXPOSURE DURING PREGNANCY [None]
  - HEADACHE [None]
  - HYPERGLYCAEMIA [None]
  - PRE-ECLAMPSIA [None]
  - SWELLING [None]
